FAERS Safety Report 9158552 (Version 2)
Quarter: 2013Q2

REPORT INFORMATION
  Report Type: Spontaneous
  Country: US (occurrence: US)
  Receive Date: 20130312
  Receipt Date: 20130506
  Transmission Date: 20140414
  Serious: Yes (Other)
  Sender: FDA-Public Use
  Company Number: US-PFIZER INC-2013082105

PATIENT
  Age: 64 Year
  Sex: Female
  Weight: 99.77 kg

DRUGS (2)
  1. NEURONTIN [Suspect]
     Indication: PAIN
     Dosage: 300 MG, UNK
     Route: 048
  2. DURAGESIC [Concomitant]
     Dosage: UNK

REACTIONS (2)
  - Hernia [Unknown]
  - Pain [Unknown]
